FAERS Safety Report 6596876-2 (Version None)
Quarter: 2010Q1

REPORT INFORMATION
  Report Type: 
  Country: None (occurrence: None)
  Receive Date: 20100212
  Receipt Date: 20100201
  Transmission Date: 20100710
  Serious: Yes (Other)
  Sender: FDA-Public Use
  Company Number: 2010SP007168

PATIENT
  Age: 98 Year
  Sex: Female
  Weight: 52.6173 kg

DRUGS (1)
  1. REMERON [Suspect]
     Indication: WEIGHT INCREASED
     Dosage: 15 MG;HS
     Dates: start: 20091208, end: 20100119

REACTIONS (4)
  - CEREBROVASCULAR ACCIDENT [None]
  - LOSS OF CONSCIOUSNESS [None]
  - MANIA [None]
  - OEDEMA PERIPHERAL [None]
